FAERS Safety Report 11440567 (Version 1)
Quarter: 2015Q3

REPORT INFORMATION
  Report Type: Spontaneous
  Country: US (occurrence: None)
  Receive Date: 20150831
  Receipt Date: 20150831
  Transmission Date: 20151125
  Serious: Yes (Other)
  Sender: FDA-Public Use
  Company Number: None

PATIENT
  Age: 36 Year
  Sex: Female
  Weight: 68.04 kg

DRUGS (2)
  1. MONTELUKAST SODIUM. [Suspect]
     Active Substance: MONTELUKAST SODIUM
     Indication: MULTIPLE ALLERGIES
     Dosage: 1 PIULL
     Route: 048
     Dates: start: 20150605, end: 20150820
  2. MONTELUKAST SODIUM. [Suspect]
     Active Substance: MONTELUKAST SODIUM
     Indication: ASTHMA
     Dosage: 1 PIULL
     Route: 048
     Dates: start: 20150605, end: 20150820

REACTIONS (11)
  - Visual impairment [None]
  - Blood glucose abnormal [None]
  - Headache [None]
  - Aggression [None]
  - Panic attack [None]
  - Anger [None]
  - Feeling abnormal [None]
  - Anxiety [None]
  - Crying [None]
  - Palpitations [None]
  - Balance disorder [None]

NARRATIVE: CASE EVENT DATE: 20150820
